FAERS Safety Report 8583855 (Version 2)
Quarter: 2012Q4

REPORT INFORMATION
  Report Type: 
  Country: US (occurrence: US)
  Receive Date: 20120529
  Receipt Date: 20120917
  Transmission Date: 20130627
  Serious: Yes (Other)
  Sender: FDA-Public Use
  Company Number: US-ROCHE-1070825

PATIENT
  Age: 18 None
  Sex: Male
  Weight: 52.21 kg

DRUGS (4)
  1. ACCUTANE [Suspect]
     Indication: ACNE
     Route: 065
     Dates: start: 20040812
  2. ACCUTANE [Suspect]
     Route: 065
     Dates: start: 20040907
  3. ACCUTANE [Suspect]
     Route: 065
     Dates: start: 20041005
  4. ACCUTANE [Suspect]
     Route: 065
     Dates: start: 20070110, end: 20070504

REACTIONS (7)
  - Crohn^s disease [Unknown]
  - Aphthous stomatitis [Unknown]
  - Mouth ulceration [Unknown]
  - Depression [Unknown]
  - Inflammatory bowel disease [Unknown]
  - Xerosis [Unknown]
  - Lip haemorrhage [Unknown]
